FAERS Safety Report 6444542-6 (Version None)
Quarter: 2009Q4

REPORT INFORMATION
  Report Type: 
  Country: None (occurrence: None)
  Receive Date: 20091118
  Receipt Date: 20090805
  Transmission Date: 20100525
  Serious: No
  Sender: FDA-Public Use
  Company Number: A0787117A

PATIENT
  Age: 80 Year
  Sex: Male
  Weight: 77.3 kg

DRUGS (8)
  1. COREG CR [Suspect]
     Dosage: 60MG PER DAY
     Route: 048
  2. COREG [Suspect]
     Dosage: 60MG PER DAY
     Route: 048
     Dates: start: 20050101
  3. PLAVIX [Suspect]
     Indication: STENT PLACEMENT
     Dosage: 75MG PER DAY
     Route: 048
     Dates: start: 20050315
  4. ACCUPRIL [Suspect]
     Indication: DRUG USE FOR UNKNOWN INDICATION
     Route: 065
  5. ZOLOFT [Concomitant]
  6. BUSPAR [Concomitant]
  7. ATORVASTATIN [Concomitant]
     Dosage: 50MG PER DAY
  8. ASPIRIN [Concomitant]

REACTIONS (7)
  - ACCIDENT [None]
  - CONJUNCTIVITIS [None]
  - DRUG INTOLERANCE [None]
  - FALL [None]
  - FATIGUE [None]
  - HAEMATOMA [None]
  - STENT PLACEMENT [None]
